FAERS Safety Report 7469209-7 (Version None)
Quarter: 2011Q2

REPORT INFORMATION
  Report Type: 
  Country: None (occurrence: None)
  Receive Date: 20110506
  Receipt Date: 20110506
  Transmission Date: 20111010
  Serious: Yes (Hospitalization, Disabling)
  Sender: FDA-Public Use
  Company Number: None

PATIENT
  Sex: Female
  Weight: 66.6788 kg

DRUGS (1)
  1. BONIVA [Suspect]
     Indication: OSTEOPOROSIS
     Dosage: ONE PILL MONTHS
     Dates: start: 20110315

REACTIONS (6)
  - FEELING OF BODY TEMPERATURE CHANGE [None]
  - VITAMIN B12 DECREASED [None]
  - PAIN IN EXTREMITY [None]
  - INFLUENZA LIKE ILLNESS [None]
  - BLOOD FOLATE DECREASED [None]
  - MOVEMENT DISORDER [None]
